FAERS Safety Report 26101782 (Version 1)
Quarter: 2025Q4

REPORT INFORMATION
  Report Type: Spontaneous
  Country: EU (occurrence: EU)
  Receive Date: 20251128
  Receipt Date: 20251128
  Transmission Date: 20260117
  Serious: Yes (Hospitalization)
  Sender: SANDOZ
  Company Number: EU-ROCHE-10000318618

PATIENT
  Age: 53 Year
  Sex: Female

DRUGS (12)
  1. CYCLOPHOSPHAMIDE [Suspect]
     Active Substance: CYCLOPHOSPHAMIDE
     Indication: Systemic scleroderma
     Dosage: 6.4 GRAM, MONTHLY (8MONTHS)
     Route: 042
  2. CYCLOPHOSPHAMIDE [Suspect]
     Active Substance: CYCLOPHOSPHAMIDE
     Indication: Cardiac disorder
     Dosage: UNK
     Route: 065
  3. MYCOPHENOLATE MOFETIL [Suspect]
     Active Substance: MYCOPHENOLATE MOFETIL
     Indication: Systemic scleroderma
     Dosage: 2500 MG, QD
     Route: 048
  4. MYCOPHENOLATE MOFETIL [Suspect]
     Active Substance: MYCOPHENOLATE MOFETIL
     Indication: Cardiac disorder
  5. RITUXIMAB [Suspect]
     Active Substance: RITUXIMAB
     Indication: Systemic scleroderma
     Dosage: 1000 MG, Q3MO
     Route: 042
  6. RITUXIMAB [Suspect]
     Active Substance: RITUXIMAB
     Indication: Cardiac disorder
  7. BOSENTAN [Concomitant]
     Active Substance: BOSENTAN
     Indication: Systemic scleroderma
     Dosage: UNK
     Route: 065
  8. BOSENTAN [Concomitant]
     Active Substance: BOSENTAN
     Indication: Cardiac disorder
  9. ILOPROST [Concomitant]
     Active Substance: ILOPROST
     Indication: Systemic scleroderma
     Dosage: UNK
     Route: 065
  10. ILOPROST [Concomitant]
     Active Substance: ILOPROST
     Indication: Cardiac disorder
  11. NINTEDANIB [Concomitant]
     Active Substance: NINTEDANIB
     Indication: Systemic scleroderma
     Dosage: UNK
     Route: 065
  12. NINTEDANIB [Concomitant]
     Active Substance: NINTEDANIB
     Indication: Cardiac disorder

REACTIONS (2)
  - Pneumonia [Unknown]
  - COVID-19 [Unknown]
